FAERS Safety Report 24709407 (Version 2)
Quarter: 2025Q1

REPORT INFORMATION
  Report Type: Spontaneous
  Country: AU (occurrence: AU)
  Receive Date: 20241209
  Receipt Date: 20250216
  Transmission Date: 20250408
  Serious: Yes (Death, Hospitalization)
  Sender: AMGEN
  Company Number: AU-AMGEN-AUSSP2024239950

PATIENT
  Age: 68 Year
  Sex: Male

DRUGS (1)
  1. XGEVA [Suspect]
     Active Substance: DENOSUMAB
     Indication: Product used for unknown indication
     Dosage: 120 ^M^, Q6WK
     Route: 058

REACTIONS (4)
  - Lung neoplasm malignant [Fatal]
  - Pneumonia [Fatal]
  - Dyspnoea [Not Recovered/Not Resolved]
  - Off label use [Unknown]

NARRATIVE: CASE EVENT DATE: 20241202
